FAERS Safety Report 9217652 (Version 2)
Quarter: 2013Q2

REPORT INFORMATION
  Report Type: Spontaneous
  Country: US (occurrence: US)
  Receive Date: 20130408
  Receipt Date: 20130524
  Transmission Date: 20140414
  Serious: No
  Sender: FDA-Public Use
  Company Number: US-PFIZER INC-2013106843

PATIENT
  Age: 59 Year
  Sex: Female

DRUGS (9)
  1. LEVOXYL [Suspect]
     Indication: HYPOTHYROIDISM
     Dosage: 75 UG, 1X/DAY
  2. LEVOXYL [Suspect]
     Dosage: UNK
     Dates: start: 2013, end: 2013
  3. LEVOXYL [Suspect]
     Dosage: 75 UG, 1X/DAY
     Dates: start: 2013
  4. LEVOTHYROXINE SODIUM [Suspect]
     Indication: HYPOTHYROIDISM
     Dosage: 75 UG, 1X/DAY
  5. CVS SPECTRAVITE ULTRA WOMEN^S HEALTH SENIOR [Suspect]
     Indication: SUPPLEMENTATION THERAPY
     Dosage: UNK, ONCE IN THREE DAYS
  6. LEVOTHYROXINE SODIUM [Suspect]
  7. WALGREEN^S WOMEN^S SENIOR [Concomitant]
     Indication: SUPPLEMENTATION THERAPY
     Dosage: UNK, ONCE IN THREE DAYS
  8. CVS PROTECTAVISION [Concomitant]
     Indication: SUPPLEMENTATION THERAPY
     Dosage: UNK, ONCE IN THREE DAYS
  9. COENZYME Q10 [Concomitant]
     Indication: SUPPLEMENTATION THERAPY
     Dosage: 100-200MG, AS NEEDED

REACTIONS (9)
  - Drug intolerance [Unknown]
  - Constipation [Unknown]
  - Somnolence [Unknown]
  - Psychomotor hyperactivity [Unknown]
  - Urine odour abnormal [Unknown]
  - Diarrhoea [Unknown]
  - Photosensitivity reaction [Unknown]
  - Headache [Unknown]
  - Bedridden [Unknown]
